FAERS Safety Report 7514972-X (Version None)
Quarter: 2011Q2

REPORT INFORMATION
  Report Type: 
  Country: None (occurrence: None)
  Receive Date: 20110425
  Receipt Date: 20100628
  Transmission Date: 20111010
  Serious: Yes (Hospitalization)
  Sender: FDA-Public Use
  Company Number: MC201000126

PATIENT
  Age: 87 Year
  Sex: Male
  Weight: 81 kg

DRUGS (15)
  1. ZOCOR [Concomitant]
  2. DETROL [Concomitant]
  3. CLOPIDOGREL [Concomitant]
  4. VITAMIN TAB [Concomitant]
  5. ACTOS [Concomitant]
  6. FLUTAMIDE [Concomitant]
  7. JANUVIA [Concomitant]
  8. VICODIN [Concomitant]
  9. LANTUS [Concomitant]
  10. FLEXERIL [Concomitant]
  11. DIGOXIN [Concomitant]
  12. ASPIRIN [Concomitant]
  13. ANGIOMAX [Suspect]
     Indication: PERCUTANEOUS CORONARY INTERVENTION
     Dosage: 60 MG, BOLUS, INTRAVENOUS, 150 MG/HR
     Route: 042
     Dates: start: 20100415, end: 20100415
  14. ANGIOMAX [Suspect]
     Indication: PERCUTANEOUS CORONARY INTERVENTION
     Dosage: 60 MG, BOLUS, INTRAVENOUS, 150 MG/HR
     Route: 042
     Dates: start: 20100415, end: 20100415
  15. GLIPIZIDE [Concomitant]

REACTIONS (1)
  - PUNCTURE SITE HAEMORRHAGE [None]
